FAERS Safety Report 10787264 (Version 3)
Quarter: 2015Q1

REPORT INFORMATION
  Report Type: Report from Study
  Country: UA (occurrence: UA)
  Receive Date: 20150211
  Receipt Date: 20150224
  Transmission Date: 20150721
  Serious: Yes (Hospitalization)
  Sender: FDA-Public Use
  Company Number: PHHO2015UA002100

PATIENT
  Age: 34 Year
  Sex: Female
  Weight: 85.5 kg

DRUGS (36)
  1. MABTHERA [Suspect]
     Active Substance: RITUXIMAB
     Dosage: CODE NOT BROKEN
     Route: 042
     Dates: start: 20141223, end: 20141223
  2. BLINDED NO TREATMENT RECEIVED [Suspect]
     Active Substance: UNSPECIFIED INGREDIENT
     Dosage: CODE NOT BROKEN
     Route: 042
     Dates: start: 20150113, end: 20150113
  3. BLINDED NO TREATMENT RECEIVED [Suspect]
     Active Substance: UNSPECIFIED INGREDIENT
     Indication: NON-HODGKIN^S LYMPHOMA
     Dosage: CODE NOT BROKEN
     Route: 042
     Dates: start: 20141021, end: 20141021
  4. BLINDED NO TREATMENT RECEIVED [Suspect]
     Active Substance: UNSPECIFIED INGREDIENT
     Dosage: CODE NOT BROKEN
     Route: 042
     Dates: start: 20141202, end: 20141202
  5. PREDNISOLONE. [Suspect]
     Active Substance: PREDNISOLONE
     Indication: CHEMOTHERAPY
     Dosage: 100
     Route: 048
     Dates: start: 20141021, end: 20141025
  6. PREDNISOLONE. [Suspect]
     Active Substance: PREDNISOLONE
     Dosage: 100
     Route: 048
     Dates: start: 20141111, end: 20141115
  7. CYCLOPHOSPHAMIDE. [Concomitant]
     Active Substance: CYCLOPHOSPHAMIDE
     Indication: CHEMOTHERAPY
     Dosage: 1433
     Route: 042
     Dates: start: 20141021, end: 20141021
  8. CYCLOPHOSPHAMIDE. [Concomitant]
     Active Substance: CYCLOPHOSPHAMIDE
     Dosage: 1508
     Route: 042
     Dates: start: 20141223, end: 20141223
  9. CYCLOPHOSPHAMIDE. [Concomitant]
     Active Substance: CYCLOPHOSPHAMIDE
     Dosage: 1523
     Route: 042
     Dates: start: 20150113, end: 20150113
  10. VINCRISTINE [Concomitant]
     Active Substance: VINCRISTINE
     Dosage: 2
     Route: 042
     Dates: start: 20141202, end: 20141202
  11. VINCRISTINE [Concomitant]
     Active Substance: VINCRISTINE
     Dosage: 2
     Route: 042
     Dates: start: 20141223, end: 20141223
  12. MABTHERA [Suspect]
     Active Substance: RITUXIMAB
     Indication: NON-HODGKIN^S LYMPHOMA
     Dosage: CODE NOT BROKEN
     Route: 042
     Dates: start: 20141021, end: 20141021
  13. MABTHERA [Suspect]
     Active Substance: RITUXIMAB
     Dosage: CODE NOT BROKEN
     Route: 042
     Dates: start: 20150113, end: 20150113
  14. VINCRISTINE [Concomitant]
     Active Substance: VINCRISTINE
     Dosage: 2
     Route: 042
     Dates: start: 20150113, end: 20150113
  15. RITUXAN [Suspect]
     Active Substance: RITUXIMAB
     Dosage: CODE NOT BROKEN
     Route: 042
     Dates: start: 20141111, end: 20141111
  16. MABTHERA [Suspect]
     Active Substance: RITUXIMAB
     Dosage: CODE NOT BROKEN
     Route: 042
     Dates: start: 20141202, end: 20141202
  17. VINCRISTINE [Concomitant]
     Active Substance: VINCRISTINE
     Dosage: 2
     Route: 042
     Dates: start: 20150203, end: 20150203
  18. BLINDED NO TREATMENT RECEIVED [Suspect]
     Active Substance: UNSPECIFIED INGREDIENT
     Dosage: CODE NOT BROKEN
     Route: 042
     Dates: start: 20141111, end: 20141111
  19. RITUXAN [Suspect]
     Active Substance: RITUXIMAB
     Dosage: CODE NOT BROKEN
     Route: 042
     Dates: start: 20141202, end: 20141202
  20. BLINDED NO TREATMENT RECEIVED [Suspect]
     Active Substance: UNSPECIFIED INGREDIENT
     Dosage: CODE NOT BROKEN
     Route: 042
     Dates: start: 20141223, end: 20141223
  21. PREDNISOLONE. [Suspect]
     Active Substance: PREDNISOLONE
     Dosage: 100
     Route: 048
     Dates: start: 20150203, end: 20150207
  22. RITUXAN [Suspect]
     Active Substance: RITUXIMAB
     Dosage: CODE NOT BROKEN
     Route: 042
     Dates: start: 20141223, end: 20141223
  23. MABTHERA [Suspect]
     Active Substance: RITUXIMAB
     Dosage: CODE NOT BROKEN
     Route: 042
     Dates: start: 20150203, end: 20150203
  24. BLINDED NO TREATMENT RECEIVED [Suspect]
     Active Substance: UNSPECIFIED INGREDIENT
     Dosage: CODE NOT BROKEN
     Route: 042
     Dates: start: 20150203, end: 20150203
  25. PREDNISOLONE. [Suspect]
     Active Substance: PREDNISOLONE
     Dosage: 100
     Route: 048
     Dates: start: 20141223, end: 20141227
  26. CYCLOPHOSPHAMIDE. [Concomitant]
     Active Substance: CYCLOPHOSPHAMIDE
     Dosage: 1478
     Route: 042
     Dates: start: 20141111, end: 20141111
  27. VINCRISTINE [Concomitant]
     Active Substance: VINCRISTINE
     Indication: CHEMOTHERAPY
     Dosage: 2
     Route: 042
     Dates: start: 20141021, end: 20141021
  28. RITUXAN [Suspect]
     Active Substance: RITUXIMAB
     Indication: NON-HODGKIN^S LYMPHOMA
     Dosage: CODE NOT BROKEN
     Route: 042
     Dates: start: 20141021, end: 20141021
  29. MABTHERA [Suspect]
     Active Substance: RITUXIMAB
     Dosage: CODE NOT BROKEN
     Route: 042
     Dates: start: 20141111, end: 20141111
  30. PREDNISOLONE. [Suspect]
     Active Substance: PREDNISOLONE
     Dosage: 100
     Route: 048
     Dates: start: 20141202, end: 20141202
  31. PREDNISOLONE. [Suspect]
     Active Substance: PREDNISOLONE
     Dosage: 100
     Route: 048
     Dates: start: 20150113, end: 20150117
  32. CYCLOPHOSPHAMIDE. [Concomitant]
     Active Substance: CYCLOPHOSPHAMIDE
     Dosage: 1315
     Route: 042
     Dates: start: 20150203, end: 20150203
  33. RITUXAN [Suspect]
     Active Substance: RITUXIMAB
     Dosage: CODE NOT BROKEN
     Route: 042
     Dates: start: 20150113, end: 20150113
  34. RITUXAN [Suspect]
     Active Substance: RITUXIMAB
     Dosage: CODE NOT BROKEN
     Route: 042
     Dates: start: 20150203, end: 20150203
  35. CYCLOPHOSPHAMIDE. [Concomitant]
     Active Substance: CYCLOPHOSPHAMIDE
     Dosage: 1485
     Route: 042
     Dates: start: 20141202, end: 20141202
  36. VINCRISTINE [Concomitant]
     Active Substance: VINCRISTINE
     Dosage: 2
     Route: 042
     Dates: start: 20141111, end: 20141111

REACTIONS (1)
  - Endometrial hyperplasia [Recovered/Resolved]

NARRATIVE: CASE EVENT DATE: 20150125
